FAERS Safety Report 7521435-4 (Version None)
Quarter: 2011Q2

REPORT INFORMATION
  Report Type: 
  Country: None (occurrence: None)
  Receive Date: 20110603
  Receipt Date: 20110117
  Transmission Date: 20111010
  Serious: Yes (Other)
  Sender: FDA-Public Use
  Company Number: DE-BAYER-2010-004570

PATIENT
  Age: 44 Year
  Sex: Female

DRUGS (3)
  1. BETAFERON [Suspect]
     Indication: PRODUCT USED FOR UNKNOWN INDICATION
     Dosage: UNK
     Dates: start: 20020101
  2. BETAFERON [Suspect]
     Dosage: UNK
     Dates: start: 20080301
  3. BETAFERON [Suspect]
     Dosage: UNK

REACTIONS (1)
  - EXTREMITY NECROSIS [None]
